FAERS Safety Report 16631856 (Version 1)
Quarter: 2019Q3

REPORT INFORMATION
  Report Type: Spontaneous
  Country: US (occurrence: US)
  Receive Date: 20190725
  Receipt Date: 20190725
  Transmission Date: 20191004
  Serious: No
  Sender: FDA-Public Use
  Company Number: US-JNJFOC-20190732646

PATIENT
  Age: 9 Year
  Sex: Female
  Weight: 35.41 kg

DRUGS (2)
  1. CONCERTA [Suspect]
     Active Substance: METHYLPHENIDATE HYDROCHLORIDE
     Indication: ATTENTION DEFICIT/HYPERACTIVITY DISORDER
     Route: 048
     Dates: start: 20190719
  2. CLONIDINE. [Concomitant]
     Active Substance: CLONIDINE
     Indication: SLEEP DISORDER THERAPY
     Route: 065

REACTIONS (11)
  - Pain in extremity [Unknown]
  - Insomnia [Unknown]
  - Muscle twitching [Not Recovered/Not Resolved]
  - Irritability [Not Recovered/Not Resolved]
  - Headache [Unknown]
  - Chills [Unknown]
  - Hyperhidrosis [Unknown]
  - Decreased appetite [Unknown]
  - Discomfort [Unknown]
  - Abdominal pain upper [Unknown]
  - Anxiety [Not Recovered/Not Resolved]

NARRATIVE: CASE EVENT DATE: 20190719
